FAERS Safety Report 8789328 (Version 2)
Quarter: 2012Q4

REPORT INFORMATION
  Report Type: Spontaneous
  Country: NL (occurrence: None)
  Receive Date: 20120905
  Receipt Date: 20120914
  Transmission Date: 20130627
  Serious: Yes (Hospitalization, Other)
  Sender: FDA-Public Use
  Company Number: 2012MA010370

PATIENT
  Age: 24 Year
  Sex: Male

DRUGS (2)
  1. FEVERALL [Suspect]
     Route: 048
  2. ARIPIPRAZOLE [Concomitant]

REACTIONS (12)
  - Toxicity to various agents [None]
  - Vomiting [None]
  - Nausea [None]
  - Overdose [None]
  - Jaundice [None]
  - Aspartate aminotransferase increased [None]
  - Alanine aminotransferase increased [None]
  - Blood alkaline phosphatase increased [None]
  - Blood bilirubin increased [None]
  - Prothrombin time prolonged [None]
  - Suicidal ideation [None]
  - Somnolence [None]
